FAERS Safety Report 24220307 (Version 1)
Quarter: 2024Q3

REPORT INFORMATION
  Report Type: Spontaneous
  Country: FR (occurrence: FR)
  Receive Date: 20240817
  Receipt Date: 20240817
  Transmission Date: 20241017
  Serious: Yes (Hospitalization)
  Sender: TEVA
  Company Number: None

PATIENT
  Age: 71 Year
  Sex: Female
  Weight: 56 kg

DRUGS (1)
  1. ALLOPURINOL [Suspect]
     Active Substance: ALLOPURINOL
     Indication: Gout
     Route: 048
     Dates: start: 20240125, end: 202402

REACTIONS (2)
  - Drug reaction with eosinophilia and systemic symptoms [Recovered/Resolved]
  - Allergy test negative [Recovered/Resolved]

NARRATIVE: CASE EVENT DATE: 20240219
